FAERS Safety Report 8724096 (Version 2)
Quarter: 2012Q4

REPORT INFORMATION
  Report Type: 
  Country: JP (occurrence: JP)
  Receive Date: 20120815
  Receipt Date: 20120829
  Transmission Date: 20130627
  Serious: Yes (Hospitalization)
  Sender: FDA-Public Use
  Company Number: JP-PFIZER INC-2012197455

PATIENT
  Age: 80 Year
  Sex: Male

DRUGS (2)
  1. ANCARON [Suspect]
     Indication: IMPLANTABLE DEFIBRILLATOR INSERTION
     Dosage: 200 mg, daily
     Route: 048
  2. LYRICA [Interacting]
     Indication: PAIN
     Dosage: 150 mg, 2x/day
     Route: 048
     Dates: end: 20120712

REACTIONS (4)
  - Drug interaction [Recovering/Resolving]
  - Drug level decreased [Recovering/Resolving]
  - Ventricular tachycardia [Recovering/Resolving]
  - Cardiac failure [Unknown]
